FAERS Safety Report 6037991-1 (Version None)
Quarter: 2009Q1

REPORT INFORMATION
  Report Type: 
  Country: None (occurrence: None)
  Receive Date: 20090113
  Receipt Date: 20090113
  Transmission Date: 20090719
  Serious: No
  Sender: FDA-Public Use
  Company Number: None

PATIENT
  Age: 13 Year
  Sex: Female
  Weight: 43.0917 kg

DRUGS (2)
  1. ISONIAZID [Suspect]
     Indication: TUBERCULIN TEST POSITIVE
     Dosage: 1 300 MG PER DAY PO 5.5 MONTHS
     Route: 048
     Dates: start: 20080728, end: 20081231
  2. ISONIAZID [Suspect]
     Indication: TUBERCULOSIS

REACTIONS (5)
  - ASTHENIA [None]
  - FATIGUE [None]
  - NAUSEA [None]
  - PARAESTHESIA [None]
  - VOMITING [None]
